FAERS Safety Report 7643972-4 (Version None)
Quarter: 2011Q3

REPORT INFORMATION
  Report Type: 
  Country: None (occurrence: None)
  Receive Date: 20110729
  Receipt Date: 20101013
  Transmission Date: 20111222
  Serious: No
  Sender: FDA-Public Use
  Company Number: US-GLAXOSMITHKLINE-A0886411A

PATIENT
  Age: 82 Year
  Sex: Male

DRUGS (3)
  1. PLAVIX [Concomitant]
  2. ZANTAC [Suspect]
     Indication: GASTROOESOPHAGEAL REFLUX DISEASE
     Dosage: 300MG TWICE PER DAY
     Route: 048
     Dates: start: 20100922, end: 20101006
  3. OPIUM [Concomitant]

REACTIONS (1)
  - DIARRHOEA [None]
